FAERS Safety Report 7633789-9 (Version None)
Quarter: 2011Q3

REPORT INFORMATION
  Report Type: 
  Country: None (occurrence: None)
  Receive Date: 20110725
  Receipt Date: 20110711
  Transmission Date: 20111222
  Serious: Yes (Other)
  Sender: FDA-Public Use
  Company Number: CA-MERCK-1107USA01377

PATIENT
  Age: 66 Year
  Sex: Male

DRUGS (5)
  1. DIOVAN [Concomitant]
     Route: 065
  2. METFORMIN [Concomitant]
     Route: 065
  3. COSOPT [Suspect]
     Route: 047
  4. ATORVASTATIN CALCIUM [Concomitant]
     Route: 065
  5. LUMIGAN [Concomitant]
     Route: 047

REACTIONS (4)
  - ERYTHEMA [None]
  - EYE PRURITUS [None]
  - ERYTHEMA OF EYELID [None]
  - EYELID IRRITATION [None]
